FAERS Safety Report 7675313-0 (Version None)
Quarter: 2011Q3

REPORT INFORMATION
  Report Type: 
  Country: None (occurrence: None)
  Receive Date: 20110810
  Receipt Date: 20110803
  Transmission Date: 20111222
  Serious: Yes (Hospitalization)
  Sender: FDA-Public Use
  Company Number: JP-ELI_LILLY_AND_COMPANY-JP201106006891

PATIENT
  Age: 63 Year
  Sex: Male
  Weight: 62 kg

DRUGS (12)
  1. TARCEVA [Concomitant]
     Indication: LUNG ADENOCARCINOMA STAGE III
     Dosage: 150 MG, QD
     Route: 048
     Dates: start: 20110309, end: 20110327
  2. PYRINAZIN [Concomitant]
     Indication: THROMBOPHLEBITIS MIGRANS
     Dosage: 1.5 G, TID
     Route: 048
     Dates: start: 20110114, end: 20110210
  3. ALLOID G [Concomitant]
     Indication: GASTRIC MUCOSAL LESION
     Dosage: 60 ML, TID
     Route: 048
     Dates: start: 20110106, end: 20110509
  4. PANVITAN [Concomitant]
     Indication: PROPHYLAXIS
     Dosage: 1 G, QD
     Route: 048
     Dates: start: 20110114, end: 20110308
  5. CANDESARTAN CILEXETIL [Concomitant]
     Indication: HYPERTENSION
     Dosage: 8 MG, QD
     Route: 048
     Dates: start: 20081104, end: 20110629
  6. DEXAMETHASONE SODIUM PHOSPHATE [Concomitant]
     Indication: PROPHYLAXIS
     Dosage: 6.6 MG, UNK
     Route: 042
     Dates: start: 20110126, end: 20110126
  7. ALIMTA [Suspect]
     Dosage: 650 MG, UNK
     Route: 042
     Dates: start: 20110329, end: 20110712
  8. MAGNESIUM SULFATE [Concomitant]
     Indication: CONSTIPATION
     Dosage: 330 MG, TID
     Route: 048
     Dates: start: 20110131, end: 20110503
  9. ALIMTA [Suspect]
     Indication: LUNG ADENOCARCINOMA STAGE III
     Dosage: 800 MG, UNK
     Route: 042
     Dates: start: 20110126, end: 20110126
  10. AMLODIPINE [Concomitant]
     Indication: HYPERTENSION
     Dosage: 5 MG, QD
     Route: 048
     Dates: start: 20081104, end: 20110202
  11. KYTRIL [Concomitant]
     Indication: PROPHYLAXIS
     Dosage: 3 MG, UNK
     Route: 042
     Dates: start: 20110126, end: 20110126
  12. DECADRON [Concomitant]
     Indication: PROPHYLAXIS
     Dosage: 2 MG, BID
     Route: 048
     Dates: start: 20110127, end: 20110128

REACTIONS (12)
  - DEEP VEIN THROMBOSIS [None]
  - DISSEMINATED INTRAVASCULAR COAGULATION [None]
  - ANURIA [None]
  - RENAL IMPAIRMENT [None]
  - PULMONARY EMBOLISM [None]
  - SUPRAVENTRICULAR TACHYCARDIA [None]
  - CEREBRAL INFARCTION [None]
  - ENDOCARDITIS NONINFECTIVE [None]
  - HAEMATURIA [None]
  - RASH ERYTHEMATOUS [None]
  - THROMBOPHLEBITIS MIGRANS [None]
  - C-REACTIVE PROTEIN INCREASED [None]
